FAERS Safety Report 8391586-3 (Version None)
Quarter: 2012Q2

REPORT INFORMATION
  Report Type: 
  Country: None (occurrence: None)
  Receive Date: 20120529
  Receipt Date: 20120523
  Transmission Date: 20120825
  Serious: Yes (Other)
  Sender: FDA-Public Use
  Company Number: PHHY2012JP035388

PATIENT
  Sex: Female

DRUGS (6)
  1. TACROLIMUS [Concomitant]
     Indication: MIXED CONNECTIVE TISSUE DISEASE
     Dosage: UNK UKN, UNK
     Dates: end: 20110701
  2. ADRENAL CORTEX EXTRACT INJ [Concomitant]
     Indication: MIXED CONNECTIVE TISSUE DISEASE
     Dosage: UNK UKN, UNK
  3. ACYCLOVIR [Suspect]
     Dosage: UNK UKN, UNK
  4. PREDNISOLONE [Concomitant]
     Indication: MIXED CONNECTIVE TISSUE DISEASE
     Dosage: UNK UKN, UNK
  5. NEORAL [Suspect]
     Indication: MIXED CONNECTIVE TISSUE DISEASE
     Dosage: 125 MG, UNK
     Route: 048
     Dates: start: 20110701
  6. AZATHIOPRINE [Concomitant]
     Indication: MIXED CONNECTIVE TISSUE DISEASE
     Dosage: UNK UKN, UNK

REACTIONS (1)
  - MENINGITIS ASEPTIC [None]
